FAERS Safety Report 7215050-X (Version None)
Quarter: 2011Q1

REPORT INFORMATION
  Report Type: 
  Country: None (occurrence: None)
  Receive Date: 20110107
  Receipt Date: 20100727
  Transmission Date: 20110831
  Serious: No
  Sender: FDA-Public Use
  Company Number: A0872525A

PATIENT
  Sex: Male

DRUGS (2)
  1. UNKNOWN [Concomitant]
  2. LOVAZA [Suspect]
     Route: 048
     Dates: start: 20090301

REACTIONS (1)
  - BLOOD GLUCOSE INCREASED [None]
